FAERS Safety Report 5060466-3 (Version None)
Quarter: 2006Q2

REPORT INFORMATION
  Report Type: 
  Country: None (occurrence: None)
  Receive Date: 20060630
  Receipt Date: 20060417
  Transmission Date: 20061013
  Serious: Yes (Other)
  Sender: FDA-Public Use
  Company Number: 06-000335

PATIENT
  Age: 47 Year
  Sex: Female
  Weight: 61.2 kg

DRUGS (1)
  1. ESTROSTEP FE [Suspect]
     Indication: CONTRACEPTION
     Dosage: 20-30-35/1000 UG QD, ORAL
     Route: 048
     Dates: start: 20051001, end: 20060417

REACTIONS (6)
  - AMNESIA [None]
  - DISTURBANCE IN ATTENTION [None]
  - HEADACHE [None]
  - METRORRHAGIA [None]
  - SPEECH DISORDER [None]
  - TRANSIENT ISCHAEMIC ATTACK [None]
